FAERS Safety Report 7751267-3 (Version None)
Quarter: 2011Q3

REPORT INFORMATION
  Report Type: 
  Country: None (occurrence: None)
  Receive Date: 20110912
  Receipt Date: 20110829
  Transmission Date: 20111222
  Serious: Yes (Hospitalization, Other)
  Sender: FDA-Public Use
  Company Number: 2011MA012709

PATIENT
  Age: 71 Year
  Sex: Female
  Weight: 107.0489 kg

DRUGS (40)
  1. METOCLOPRAMIDE [Suspect]
     Indication: GASTROOESOPHAGEAL REFLUX DISEASE
     Dosage: 10 MG;QID;PO
     Route: 048
     Dates: start: 20030613, end: 20090113
  2. METOCLOPRAMIDE [Suspect]
     Indication: NAUSEA
     Dosage: 10 MG;QID;PO
     Route: 048
     Dates: start: 20030613, end: 20090113
  3. METOCLOPRAMIDE [Suspect]
     Indication: DIABETIC GASTROPARESIS
     Dosage: 10 MG;QID;PO
     Route: 048
     Dates: start: 20030613, end: 20090113
  4. LIPITOR [Concomitant]
  5. TINACTIN [Concomitant]
  6. WELLBUTRIN [Concomitant]
  7. DIPHENHYDRAMINE HCL [Concomitant]
  8. LEVAQUIN [Concomitant]
  9. TEGASEROD [Concomitant]
  10. ZAROXOLYN [Concomitant]
  11. DOXEPIN [Concomitant]
  12. LORAZEPAM [Concomitant]
  13. METOLAZONE [Concomitant]
  14. TOLECTIN [Concomitant]
  15. CEFTRIAXONE [Concomitant]
  16. KENALOG [Concomitant]
  17. METFORMIN [Concomitant]
  18. MIRALAX [Concomitant]
  19. NYSTATIN [Concomitant]
  20. PIPERACILLIN [Concomitant]
  21. SUCRALFATE [Concomitant]
  22. ZOSYN [Concomitant]
  23. ASPIRIN [Concomitant]
  24. PRILOSEC [Concomitant]
  25. FLUCONAZOLE [Concomitant]
  26. FUROSEMIDE [Concomitant]
  27. MUCINEX [Concomitant]
  28. CEPHALEXIN [Concomitant]
  29. LISINOPRIL [Concomitant]
  30. MOTRIN [Concomitant]
  31. OXYCODONE HCL AND ACETAMINOPHEN [Concomitant]
  32. PANTOPRAZOLE [Concomitant]
  33. POTASSIUM [Concomitant]
  34. ROSIGLITAZONE [Concomitant]
  35. SERTRALINE HYDROCHLORIDE [Concomitant]
  36. TYLENOL-500 [Concomitant]
  37. ALPRAZOLAM [Concomitant]
  38. CLOTRIMAZOLE [Concomitant]
  39. INSULIN [Concomitant]
  40. SIMVASTATIN [Concomitant]

REACTIONS (52)
  - BRADYKINESIA [None]
  - PARKINSONISM [None]
  - SLEEP DISORDER [None]
  - TARDIVE DYSKINESIA [None]
  - DYSPHAGIA [None]
  - ABDOMINAL PAIN [None]
  - CEREBROVASCULAR ACCIDENT [None]
  - GASTROOESOPHAGEAL REFLUX DISEASE [None]
  - JOINT STIFFNESS [None]
  - DIABETES MELLITUS [None]
  - DIABETIC GASTROPARESIS [None]
  - OSTEOARTHRITIS [None]
  - MUSCLE RIGIDITY [None]
  - CELLULITIS [None]
  - ACQUIRED OESOPHAGEAL WEB [None]
  - ABDOMINAL DISTENSION [None]
  - CEREBROVASCULAR DISORDER [None]
  - FATIGUE [None]
  - DYSPNOEA [None]
  - BITE [None]
  - TREMOR [None]
  - GASTRIC ULCER [None]
  - NEUROPATHIC ARTHROPATHY [None]
  - HYPOKINESIA [None]
  - DRY EYE [None]
  - FLAT AFFECT [None]
  - IMPAIRED GASTRIC EMPTYING [None]
  - LIP DISORDER [None]
  - ACTIVITIES OF DAILY LIVING IMPAIRED [None]
  - DEPRESSION [None]
  - DYSKINESIA [None]
  - BACK PAIN [None]
  - AUTONOMIC NEUROPATHY [None]
  - MYALGIA [None]
  - SPEECH DISORDER [None]
  - BARRETT'S OESOPHAGUS [None]
  - CATARACT [None]
  - CORONARY ARTERY DISEASE [None]
  - DYSPEPSIA [None]
  - OEDEMA PERIPHERAL [None]
  - RASH [None]
  - ULCER [None]
  - CAROTID ARTERY STENOSIS [None]
  - DIABETIC NEUROPATHY [None]
  - DIABETIC RETINOPATHY [None]
  - ASTHENIA [None]
  - GAIT DISTURBANCE [None]
  - MOVEMENT DISORDER [None]
  - CONSTIPATION [None]
  - HIATUS HERNIA [None]
  - GASTRITIS [None]
  - BLOOD CHOLESTEROL INCREASED [None]
